FAERS Safety Report 23262731 (Version 1)
Quarter: 2023Q4

REPORT INFORMATION
  Report Type: Spontaneous
  Country: US (occurrence: None)
  Receive Date: 20231204
  Receipt Date: 20231204
  Transmission Date: 20240110
  Serious: Yes (Life-Threatening, Hospitalization, Disabling, Other)
  Sender: FDA-Public Use
  Company Number: None

PATIENT
  Age: 21 Year
  Sex: Male
  Weight: 65.25 kg

DRUGS (1)
  1. CIPROFLOXACIN [Suspect]
     Active Substance: CIPROFLOXACIN
     Indication: Cough
     Dosage: OTHER QUANTITY : 1 TABLET(S);?FREQUENCY : TWICE A DAY;?
     Route: 048
     Dates: start: 20200204, end: 20200205

REACTIONS (17)
  - Product prescribing issue [None]
  - Toxicity to various agents [None]
  - Neuropathy peripheral [None]
  - Nerve injury [None]
  - Headache [None]
  - Pudendal canal syndrome [None]
  - Feeling abnormal [None]
  - Muscle tightness [None]
  - Dysstasia [None]
  - Insomnia [None]
  - Brain injury [None]
  - Inflammation [None]
  - Gastrointestinal disorder [None]
  - Immunosuppression [None]
  - Fatigue [None]
  - Asthenia [None]
  - Impaired quality of life [None]

NARRATIVE: CASE EVENT DATE: 20200204
